FAERS Safety Report 24019351 (Version 1)
Quarter: 2024Q2

REPORT INFORMATION
  Report Type: Report from Study
  Country: CA (occurrence: CA)
  Receive Date: 20240627
  Receipt Date: 20240627
  Transmission Date: 20240716
  Serious: Yes (Death, Hospitalization)
  Sender: FDA-Public Use
  Company Number: CA-BAYER-2024A090116

PATIENT
  Age: 80 Year
  Sex: Male

DRUGS (6)
  1. ADEMPAS [Suspect]
     Active Substance: RIOCIGUAT
     Indication: Pulmonary arterial hypertension
     Dosage: 2.5 MG, TID
     Dates: start: 20170501, end: 20240619
  2. EPOPROSTENOL [Concomitant]
     Active Substance: EPOPROSTENOL
  3. OPSUMIT [Concomitant]
     Active Substance: MACITENTAN
  4. PANTOPRAZOLE SODIUM [Concomitant]
     Active Substance: PANTOPRAZOLE SODIUM
  5. COUMADIN [Concomitant]
     Active Substance: WARFARIN SODIUM
  6. RAMIPRIL [Concomitant]
     Active Substance: RAMIPRIL

REACTIONS (3)
  - Death [Fatal]
  - Spinal fracture [Unknown]
  - Back pain [None]

NARRATIVE: CASE EVENT DATE: 20240501
